FAERS Safety Report 21219855 (Version 4)
Quarter: 2022Q3

REPORT INFORMATION
  Report Type: Spontaneous
  Country: US (occurrence: US)
  Receive Date: 20220817
  Receipt Date: 20220919
  Transmission Date: 20221027
  Serious: Yes (Other)
  Sender: FDA-Public Use
  Company Number: US-CELLTRION INC.-2022US011162

PATIENT

DRUGS (4)
  1. INFLECTRA [Suspect]
     Active Substance: INFLIXIMAB-DYYB
     Indication: Cardiac sarcoidosis
     Dosage: 300 MG OF INFLECTRA FREQUENCY: Q 2 WKS, Q 4 WKS, Q 8 WKS QUANTITY: (BLANK) REFILLS: 8
     Route: 065
  2. INFLECTRA [Suspect]
     Active Substance: INFLIXIMAB-DYYB
     Indication: Pulmonary sarcoidosis
     Dosage: 300 MG, EVERY 2 WEEKS
     Route: 065
  3. METHOTREXATE [Concomitant]
     Active Substance: METHOTREXATE
  4. PREDNISONE [Concomitant]
     Active Substance: PREDNISONE

REACTIONS (3)
  - Cardiac sarcoidosis [Unknown]
  - Pulmonary sarcoidosis [Unknown]
  - Off label use [Unknown]
